FAERS Safety Report 7134464-X (Version None)
Quarter: 2010Q4

REPORT INFORMATION
  Report Type: 
  Country: None (occurrence: None)
  Receive Date: 20101203
  Receipt Date: 20101129
  Transmission Date: 20110411
  Serious: Yes (Other)
  Sender: FDA-Public Use
  Company Number: JP-B.I. PHARMACEUTICALS,INC./RIDGEFIELD-2010-BP-13403NB

PATIENT
  Age: 76 Year
  Sex: Male

DRUGS (2)
  1. MICARDIS [Suspect]
     Dosage: 60 MG
     Route: 048
     Dates: start: 20101020, end: 20101114
  2. URIEF [Suspect]
     Dosage: 4 MG
     Route: 048
     Dates: start: 20101020, end: 20101114

REACTIONS (3)
  - ARRHYTHMIA [None]
  - LOSS OF CONSCIOUSNESS [None]
  - SYNCOPE [None]
